FAERS Safety Report 12785252 (Version 1)
Quarter: 2016Q3

REPORT INFORMATION
  Report Type: Report from Study
  Country: US (occurrence: US)
  Receive Date: 20160927
  Receipt Date: 20160927
  Transmission Date: 20161109
  Serious: Yes (Other)
  Sender: FDA-Public Use
  Company Number: US-BAYER-2016-156075

PATIENT
  Age: 62 Year
  Sex: Male

DRUGS (4)
  1. NEXAVAR [Suspect]
     Active Substance: SORAFENIB
     Indication: RENAL CANCER
     Dosage: 400 MG, BID
     Route: 048
     Dates: start: 20160806, end: 2016
  2. NEXAVAR [Suspect]
     Active Substance: SORAFENIB
     Indication: RENAL CANCER
     Dosage: 200 MG, BID
     Route: 048
     Dates: start: 2016, end: 2016
  3. NEXAVAR [Suspect]
     Active Substance: SORAFENIB
     Indication: HEPATOCELLULAR CARCINOMA
     Dosage: 200 MG, QD
     Route: 048
     Dates: start: 2016
  4. NEXAVAR [Suspect]
     Active Substance: SORAFENIB
     Indication: RENAL CANCER
     Dosage: 200 MG, BID
     Route: 048
     Dates: start: 2016

REACTIONS (18)
  - Discomfort [None]
  - Hyperhidrosis [None]
  - Metastases to abdominal cavity [None]
  - Abdominal distension [None]
  - Vomiting [Recovered/Resolved]
  - Laboratory test abnormal [None]
  - Constipation [None]
  - Nausea [None]
  - Fatigue [None]
  - Blood sodium decreased [None]
  - Vomiting [Recovered/Resolved]
  - Vomiting [None]
  - Nausea [None]
  - Dyspnoea exertional [None]
  - Ascites [Not Recovered/Not Resolved]
  - Feeling hot [None]
  - Somnolence [None]
  - Asthenia [None]

NARRATIVE: CASE EVENT DATE: 2016
